FAERS Safety Report 7007397-7 (Version None)
Quarter: 2010Q3

REPORT INFORMATION
  Report Type: 
  Country: None (occurrence: None)
  Receive Date: 20100922
  Receipt Date: 20100910
  Transmission Date: 20110219
  Serious: Yes (Other)
  Sender: FDA-Public Use
  Company Number: DE-PFIZER INC-2010109596

PATIENT
  Age: 32 Year
  Sex: Male
  Weight: 76 kg

DRUGS (5)
  1. ATARAX [Suspect]
     Dosage: 150 MG, SINGLE (6 TABL. 25 MG MAX. - TOTAL AMOUNT : 150 MG)
     Route: 048
  2. PREGABALIN [Suspect]
     Dosage: 6300 MG, SINGLE
     Route: 048
  3. DOXEPIN HYDROCHLORIDE [Suspect]
     Dosage: 3650 MG, SINGLE
     Route: 048
  4. METHADONE [Suspect]
     Route: 048
  5. HEROIN [Suspect]
     Route: 042

REACTIONS (3)
  - COMA [None]
  - ELECTROCARDIOGRAM QRS COMPLEX PROLONGED [None]
  - SUICIDE ATTEMPT [None]
